FAERS Safety Report 9340880 (Version 3)
Quarter: 2013Q3

REPORT INFORMATION
  Report Type: Spontaneous
  Country: JP (occurrence: JP)
  Receive Date: 20130610
  Receipt Date: 20130903
  Transmission Date: 20140515
  Serious: Yes (Other)
  Sender: FDA-Public Use
  Company Number: JP-B.I. PHARMACEUTICALS,INC./RIDGEFIELD-2013-BI-16359NB

PATIENT
  Age: 62 Year
  Sex: Male
  Weight: 67.2 kg

DRUGS (6)
  1. TRAZENTA [Suspect]
     Indication: DIABETES MELLITUS
     Dosage: 5 MG
     Route: 048
     Dates: start: 20130306, end: 20130528
  2. PLAVIX [Concomitant]
     Indication: CARDIAC FAILURE
     Dosage: 1 DF
     Route: 048
     Dates: start: 201012
  3. ARTIST [Concomitant]
     Indication: CARDIAC FAILURE
     Dosage: 1 DF
     Route: 048
     Dates: start: 201012
  4. RENIVACE [Concomitant]
     Indication: CARDIAC FAILURE
     Dosage: 1 DF
     Route: 048
     Dates: start: 201012
  5. LIVALO [Concomitant]
     Indication: CARDIAC FAILURE
     Dosage: 1 DF
     Route: 048
     Dates: start: 201012
  6. BAYASPIRIN [Concomitant]
     Indication: CARDIAC FAILURE
     Dosage: 1 DF
     Route: 048
     Dates: start: 201012

REACTIONS (1)
  - Renal failure acute [Not Recovered/Not Resolved]
